FAERS Safety Report 9689122 (Version 2)
Quarter: 2013Q4

REPORT INFORMATION
  Report Type: Report from Study
  Country: US (occurrence: US)
  Receive Date: 20131114
  Receipt Date: 20131114
  Transmission Date: 20140711
  Serious: Yes (Hospitalization)
  Sender: FDA-Public Use
  Company Number: US-ROCHE-1222710

PATIENT
  Sex: Female
  Weight: 59.88 kg

DRUGS (4)
  1. XELODA [Suspect]
     Indication: COLORECTAL CANCER METASTATIC
     Route: 048
     Dates: start: 20130404, end: 20130715
  2. XELODA [Suspect]
     Route: 065
     Dates: start: 20130425
  3. AVASTIN [Suspect]
     Indication: COLORECTAL CANCER METASTATIC
     Route: 042
     Dates: start: 20121120, end: 20130314
  4. AVASTIN [Suspect]
     Route: 065
     Dates: start: 201303

REACTIONS (19)
  - Device malfunction [Recovered/Resolved]
  - Traumatic lung injury [Unknown]
  - Blood pressure increased [Not Recovered/Not Resolved]
  - Mastoiditis [Recovering/Resolving]
  - Pain in extremity [Not Recovered/Not Resolved]
  - Catheter placement [Recovered/Resolved]
  - Diarrhoea [Recovered/Resolved]
  - Neuropathy peripheral [Not Recovered/Not Resolved]
  - Tremor [Not Recovered/Not Resolved]
  - Pain in extremity [Not Recovered/Not Resolved]
  - Appetite disorder [Not Recovered/Not Resolved]
  - Skin fissures [Not Recovered/Not Resolved]
  - Hypotension [Unknown]
  - Headache [Unknown]
  - Chest pain [Unknown]
  - Erythema [Not Recovered/Not Resolved]
  - Weight decreased [Unknown]
  - Dizziness [Unknown]
  - Dehydration [Unknown]
